FAERS Safety Report 22956362 (Version 2)
Quarter: 2023Q4

REPORT INFORMATION
  Report Type: Spontaneous
  Country: JP (occurrence: JP)
  Receive Date: 20230919
  Receipt Date: 20231004
  Transmission Date: 20240110
  Serious: Yes (Hospitalization)
  Sender: FDA-Public Use
  Company Number: JP-002147023-NVSJ2023JP013661

PATIENT
  Age: 2 Year
  Sex: Male
  Weight: 11.3 kg

DRUGS (2)
  1. ILARIS [Suspect]
     Active Substance: CANAKINUMAB
     Indication: Still^s disease
     Dosage: 4 MG/KG
     Route: 058
     Dates: start: 20230802
  2. ILARIS [Suspect]
     Active Substance: CANAKINUMAB
     Dosage: 4 MG/KG
     Route: 058
     Dates: start: 20230825

REACTIONS (2)
  - Juvenile idiopathic arthritis [Recovered/Resolved]
  - Pyrexia [Recovered/Resolved]

NARRATIVE: CASE EVENT DATE: 20230831
